FAERS Safety Report 15641253 (Version 1)
Quarter: 2018Q4

REPORT INFORMATION
  Report Type: Spontaneous
  Country: SG (occurrence: SG)
  Receive Date: 20181120
  Receipt Date: 20181120
  Transmission Date: 20190205
  Serious: Yes (Other)
  Sender: FDA-Public Use
  Company Number: SG-ELEFSEE PHARMACEUTICALS INTERNATIONAL-SG-2018WTD001207

PATIENT
  Age: 89 Year
  Sex: Male

DRUGS (2)
  1. FENTANYL. [Suspect]
     Active Substance: FENTANYL
     Indication: SPINAL ANAESTHESIA
     Dosage: 10 ?G, (AT L4/5 LEVEL)
  2. BUPIVACAINE. [Suspect]
     Active Substance: BUPIVACAINE
     Indication: SPINAL ANAESTHESIA
     Dosage: 2.5 ML,  (AT L4/5 LEVEL)

REACTIONS (1)
  - Sinus node dysfunction [Unknown]
